FAERS Safety Report 21933169 (Version 2)
Quarter: 2023Q2

REPORT INFORMATION
  Report Type: Spontaneous
  Country: US (occurrence: US)
  Receive Date: 20230131
  Receipt Date: 20230414
  Transmission Date: 20230722
  Serious: Yes (Other)
  Sender: FDA-Public Use
  Company Number: US-BRISTOL-MYERS SQUIBB COMPANY-2023-012221

PATIENT
  Age: 79 Year
  Sex: Male
  Weight: 107.05 kg

DRUGS (1)
  1. REVLIMID [Suspect]
     Active Substance: LENALIDOMIDE
     Indication: Plasma cell myeloma
     Dosage: 21D OF 28D CYCLE, 3 WKSON,1WKOFF
     Route: 048
     Dates: start: 20221201

REACTIONS (3)
  - Dysphonia [Unknown]
  - Salivary gland disorder [Unknown]
  - Peripheral swelling [Recovering/Resolving]
